FAERS Safety Report 7427188-2 (Version None)
Quarter: 2011Q2

REPORT INFORMATION
  Report Type: 
  Country: None (occurrence: None)
  Receive Date: 20110420
  Receipt Date: 20110407
  Transmission Date: 20111010
  Serious: Yes (Hospitalization)
  Sender: FDA-Public Use
  Company Number: CA-JNJFOC-20110404037

PATIENT
  Sex: Male
  Weight: 69 kg

DRUGS (11)
  1. SOLU-CORTEF [Concomitant]
     Indication: PREMEDICATION
     Route: 042
  2. AMITRIPTYLINE HCL [Concomitant]
     Route: 065
  3. DIDROCAL [Concomitant]
     Route: 065
  4. ACETAMINOPHEN [Concomitant]
     Indication: PREMEDICATION
     Route: 048
  5. ALFUZOSIN HCL [Concomitant]
     Route: 065
  6. NAPROXEN [Concomitant]
     Route: 065
  7. BENADRYL [Concomitant]
     Indication: PREMEDICATION
     Route: 042
  8. REMICADE [Suspect]
     Indication: CROHN'S DISEASE
     Route: 042
  9. CODEINE [Concomitant]
     Route: 065
  10. CLONAZEPAM [Concomitant]
     Route: 065
  11. NOCTRAN [Concomitant]
     Route: 065

REACTIONS (1)
  - NEPHROLITHIASIS [None]
